FAERS Safety Report 6602995-4 (Version None)
Quarter: 2010Q1

REPORT INFORMATION
  Report Type: 
  Country: None (occurrence: None)
  Receive Date: 20100226
  Receipt Date: 20100223
  Transmission Date: 20100710
  Serious: Yes (Other)
  Sender: FDA-Public Use
  Company Number: CA-BAYER-201014809NA

PATIENT
  Age: 25 Year
  Sex: Female
  Weight: 145 kg

DRUGS (1)
  1. YASMIN [Suspect]
     Indication: DRUG USE FOR UNKNOWN INDICATION
     Dates: start: 20080501, end: 20090701

REACTIONS (1)
  - BLOOD POTASSIUM INCREASED [None]
